FAERS Safety Report 6438372-9 (Version None)
Quarter: 2009Q4

REPORT INFORMATION
  Report Type: 
  Country: None (occurrence: None)
  Receive Date: 20091112
  Receipt Date: 20091105
  Transmission Date: 20100525
  Serious: Yes (Other)
  Sender: FDA-Public Use
  Company Number: US-B.I. PHARMACEUTICALS,INC./RIDGEFIELD-2009-BP-11031BP

PATIENT
  Age: 71 Year
  Sex: Male
  Weight: 84.4 kg

DRUGS (6)
  1. FLOMAX [Suspect]
     Indication: NOCTURIA
     Dosage: 0.4 MG
     Dates: start: 20090915
  2. OMEPRAZOLE [Concomitant]
  3. GLIPIZIDE [Concomitant]
     Dosage: 1 MG
  4. SIMAVASTATIN [Concomitant]
     Dosage: 40 MG
  5. CYMBALTA [Concomitant]
     Dosage: 60 MG
  6. DIOVAN [Concomitant]
     Dosage: 40 MG

REACTIONS (1)
  - LOSS OF CONSCIOUSNESS [None]
